FAERS Safety Report 25158703 (Version 1)
Quarter: 2025Q2

REPORT INFORMATION
  Report Type: Spontaneous
  Country: US (occurrence: US)
  Receive Date: 20250404
  Receipt Date: 20250404
  Transmission Date: 20250716
  Serious: No
  Sender: BRISTOL MYERS SQUIBB
  Company Number: US-BRISTOL-MYERS SQUIBB COMPANY-2025-049472

PATIENT
  Age: 67 Year
  Sex: Male

DRUGS (3)
  1. ORENCIA [Suspect]
     Active Substance: ABATACEPT
     Indication: Psoriasis
     Route: 058
     Dates: start: 202409
  2. ORENCIA [Suspect]
     Active Substance: ABATACEPT
     Indication: Psoriatic arthropathy
  3. MELOXICAM [Suspect]
     Active Substance: MELOXICAM
     Indication: Product used for unknown indication

REACTIONS (1)
  - Pain [Unknown]
